FAERS Safety Report 21284991 (Version 2)
Quarter: 2022Q4

REPORT INFORMATION
  Report Type: Spontaneous
  Country: VE (occurrence: VE)
  Receive Date: 20220902
  Receipt Date: 20221108
  Transmission Date: 20230112
  Serious: Yes (Other)
  Sender: FDA-Public Use
  Company Number: VE-NOVARTISPH-NVSC2020VE271875

PATIENT
  Age: 44 Year
  Sex: Male

DRUGS (3)
  1. GLIVEC [Suspect]
     Active Substance: IMATINIB MESYLATE
     Indication: Chronic myeloid leukaemia
     Dosage: UNK
     Route: 065
  2. GLIVEC [Suspect]
     Active Substance: IMATINIB MESYLATE
     Dosage: 200 MG (FOR 10 DAYS)
     Route: 065
  3. GLIVEC [Suspect]
     Active Substance: IMATINIB MESYLATE
     Dosage: 400 MG (4 X100 MG)
     Route: 065

REACTIONS (21)
  - Kidney infection [Unknown]
  - White blood cell count decreased [Unknown]
  - Hepatitis [Unknown]
  - Feeling abnormal [Unknown]
  - Viral infection [Unknown]
  - Decreased immune responsiveness [Unknown]
  - Laboratory test abnormal [Unknown]
  - Illness [Unknown]
  - Discouragement [Unknown]
  - Blood glucose abnormal [Unknown]
  - White blood cell count increased [Unknown]
  - Headache [Unknown]
  - Cytogenetic analysis abnormal [Unknown]
  - Dizziness [Recovering/Resolving]
  - Influenza [Unknown]
  - Pyrexia [Unknown]
  - Vomiting [Unknown]
  - Platelet count decreased [Unknown]
  - Malaise [Unknown]
  - Therapeutic product effect incomplete [Unknown]
  - Product use issue [Unknown]

NARRATIVE: CASE EVENT DATE: 20210222
